FAERS Safety Report 23091158 (Version 3)
Quarter: 2023Q4

REPORT INFORMATION
  Report Type: Spontaneous
  Country: IT (occurrence: IT)
  Receive Date: 20231020
  Receipt Date: 20231028
  Transmission Date: 20240110
  Serious: Yes (Death, Hospitalization, Other)
  Sender: FDA-Public Use
  Company Number: IT-PFIZER INC-202300330960

PATIENT
  Age: 74 Year
  Sex: Female

DRUGS (19)
  1. IMBRUVICA [Suspect]
     Active Substance: IBRUTINIB
     Indication: Chronic lymphocytic leukaemia
     Dosage: TIME INTERVAL: 1 CYCLICAL: UNK, CYCLIC
     Route: 065
     Dates: start: 2014, end: 2016
  2. DAPTOMYCIN [Concomitant]
     Active Substance: DAPTOMYCIN
     Indication: Pulmonary sepsis
     Dosage: UNK
     Route: 065
  3. MEROPENEM [Concomitant]
     Active Substance: MEROPENEM
     Indication: Pulmonary sepsis
     Dosage: UNK
     Route: 065
  4. FLUCONAZOLE [Suspect]
     Active Substance: FLUCONAZOLE
     Indication: Pulmonary sepsis
     Dosage: UNK
     Route: 065
     Dates: start: 2022
  5. CASPOFUNGIN [Suspect]
     Active Substance: CASPOFUNGIN
     Indication: Fungal infection
     Dosage: UNK
     Route: 065
  6. RITUXIMAB [Suspect]
     Active Substance: RITUXIMAB
     Indication: Chronic lymphocytic leukaemia
     Dosage: TIME INTERVAL: 1 CYCLICAL: UNK, CYCLIC
     Route: 065
     Dates: start: 2012
  7. RITUXIMAB [Suspect]
     Active Substance: RITUXIMAB
     Indication: Chronic lymphocytic leukaemia
     Dosage: TIME INTERVAL: 1 CYCLICAL: UNK, CYCLIC
     Route: 065
     Dates: start: 2006
  8. RITUXIMAB [Suspect]
     Active Substance: RITUXIMAB
     Indication: Chronic lymphocytic leukaemia
     Dosage: TIME INTERVAL: 1 CYCLICAL: UNK, CYCLIC
     Route: 065
     Dates: start: 2020
  9. RITUXIMAB [Suspect]
     Active Substance: RITUXIMAB
     Indication: Chronic lymphocytic leukaemia
     Dosage: TIME INTERVAL: 1 CYCLICAL: UNK, CYCLIC
     Route: 065
     Dates: start: 2010
  10. FLUDARABINE PHOSPHATE [Suspect]
     Active Substance: FLUDARABINE PHOSPHATE
     Indication: Chronic lymphocytic leukaemia
     Dosage: TIME INTERVAL: 1 CYCLICAL: UNK, CYCLIC
     Route: 065
     Dates: start: 2010
  11. FLUDARABINE PHOSPHATE [Suspect]
     Active Substance: FLUDARABINE PHOSPHATE
     Indication: Chronic lymphocytic leukaemia
     Dosage: TIME INTERVAL: 1 CYCLICAL: UNK, CYCLIC
     Route: 065
     Dates: start: 2006
  12. CEFTRIAXONE [Concomitant]
     Active Substance: CEFTRIAXONE\CEFTRIAXONE SODIUM
     Indication: Pulmonary sepsis
     Dosage: UNK
     Route: 065
     Dates: start: 2022
  13. IDELALISIB [Suspect]
     Active Substance: IDELALISIB
     Indication: Chronic lymphocytic leukaemia
     Dosage: TIME INTERVAL: 1 CYCLICAL: UNK, CYCLIC
     Route: 065
     Dates: start: 2020
  14. ZANUBRUTINIB [Suspect]
     Active Substance: ZANUBRUTINIB
     Indication: Chronic lymphocytic leukaemia
     Dosage: TIME INTERVAL: 1 CYCLICAL: UNK, CYCLIC
     Route: 065
     Dates: start: 202005
  15. CYCLOPHOSPHAMIDE [Suspect]
     Active Substance: CYCLOPHOSPHAMIDE
     Indication: Chronic lymphocytic leukaemia
     Dosage: TIME INTERVAL: 1 CYCLICAL: UNK, CYCLIC
     Route: 065
     Dates: start: 2010
  16. CYCLOPHOSPHAMIDE [Suspect]
     Active Substance: CYCLOPHOSPHAMIDE
     Indication: Chronic lymphocytic leukaemia
     Dosage: TIME INTERVAL: 1 CYCLICAL: UNK, CYCLIC
     Route: 065
     Dates: start: 2006
  17. BENDAMUSTINE [Suspect]
     Active Substance: BENDAMUSTINE
     Indication: Chronic lymphocytic leukaemia
     Dosage: TIME INTERVAL: 1 CYCLICAL: UNK, CYCLIC
     Route: 065
     Dates: start: 2013
  18. LEVOFLOXACIN [Concomitant]
     Active Substance: LEVOFLOXACIN
     Indication: Pulmonary sepsis
     Dosage: UNK
     Route: 065
     Dates: start: 2022
  19. VENETOCLAX [Suspect]
     Active Substance: VENETOCLAX
     Indication: Chronic lymphocytic leukaemia
     Dosage: TIME INTERVAL: CYCLICAL: UNK, CYCLIC
     Route: 065
     Dates: start: 2017, end: 2020

REACTIONS (1)
  - Mucormycosis [Fatal]
